FAERS Safety Report 9709205 (Version 3)
Quarter: 2013Q4

REPORT INFORMATION
  Report Type: Spontaneous
  Country: US (occurrence: US)
  Receive Date: 20131125
  Receipt Date: 20131217
  Transmission Date: 20140711
  Serious: Yes (Hospitalization, Disabling, Other)
  Sender: FDA-Public Use
  Company Number: US-009507513-1205USA00950

PATIENT
  Sex: Female

DRUGS (3)
  1. FOSAMAX [Suspect]
     Indication: OSTEOPOROSIS
     Dosage: 70 MG, QW
     Route: 048
     Dates: start: 1998, end: 2010
  2. FOSAMAX [Suspect]
     Dosage: 70 MG, UNK
     Route: 048
  3. ALENDRONATE SODIUM [Suspect]
     Dosage: 70 MG, UNK

REACTIONS (47)
  - Femur fracture [Not Recovered/Not Resolved]
  - Intramedullary rod insertion [Unknown]
  - Joint arthroplasty [Unknown]
  - Myocardial infarction [Unknown]
  - Colostomy [Unknown]
  - Colostomy closure [Unknown]
  - Low turnover osteopathy [Not Recovered/Not Resolved]
  - Osteoporosis [Not Recovered/Not Resolved]
  - Stress fracture [Not Recovered/Not Resolved]
  - Depression [Unknown]
  - Anxiety [Unknown]
  - Fracture delayed union [Unknown]
  - Hypertension [Unknown]
  - Hyperlipidaemia [Unknown]
  - Chest pain [Recovered/Resolved]
  - Coronary artery disease [Unknown]
  - Coronary arterial stent insertion [Unknown]
  - Fall [Unknown]
  - Osteoarthritis [Unknown]
  - Inappropriate schedule of drug administration [Unknown]
  - Abdominal hernia [Unknown]
  - Aortic disorder [Unknown]
  - Muscular weakness [Unknown]
  - Gait disturbance [Unknown]
  - Benign breast neoplasm [Unknown]
  - Laparotomy [Unknown]
  - Appendicectomy [Unknown]
  - Abscess [Unknown]
  - Decreased appetite [Unknown]
  - Glucose tolerance impaired [Unknown]
  - Specific gravity urine decreased [Unknown]
  - Blood urine present [Unknown]
  - Anaemia postoperative [Unknown]
  - Pyrexia [Unknown]
  - Body height decreased [Unknown]
  - Spinal fracture [Unknown]
  - Adverse event [Unknown]
  - Oophorectomy [Unknown]
  - Caffeine consumption [Unknown]
  - Amenorrhoea [Unknown]
  - Stress fracture [Unknown]
  - Fracture [Unknown]
  - Osteoarthritis [Unknown]
  - Vascular calcification [Unknown]
  - Back pain [Unknown]
  - Abdominal pain [Recovered/Resolved]
  - Neck pain [Not Recovered/Not Resolved]
